FAERS Safety Report 5115702-1 (Version None)
Quarter: 2006Q3

REPORT INFORMATION
  Report Type: 
  Country: None (occurrence: None)
  Receive Date: 20060926
  Receipt Date: 20060926
  Transmission Date: 20061208
  Serious: Yes (Other)
  Sender: FDA-Public Use
  Company Number: None

PATIENT
  Sex: Female

DRUGS (3)
  1. THALIDOMIDE [Suspect]
     Indication: AMYOTROPHIC LATERAL SCLEROSIS
     Dosage: 200 MG /DAY
     Dates: start: 20060608
  2. LOVENOX [Concomitant]
  3. COUMADIN [Concomitant]

REACTIONS (3)
  - DEEP VEIN THROMBOSIS [None]
  - RASH [None]
  - SWELLING [None]
